FAERS Safety Report 5951958-0 (Version None)
Quarter: 2008Q4

REPORT INFORMATION
  Report Type: 
  Country: None (occurrence: None)
  Receive Date: 20081113
  Receipt Date: 20071001
  Transmission Date: 20090506
  Serious: No
  Sender: FDA-Public Use
  Company Number: A0685308A

PATIENT
  Age: 75 Year
  Sex: Female

DRUGS (6)
  1. COREG [Suspect]
     Dosage: 6.25MG TWICE PER DAY
     Route: 048
     Dates: start: 20050801
  2. CHOLESTEROL REDUCING AGENT [Concomitant]
  3. LISINOPRIL [Concomitant]
  4. THYROID MEDICATION [Concomitant]
  5. LORCET-HD [Concomitant]
  6. ATIVAN [Concomitant]

REACTIONS (2)
  - BLOOD PRESSURE INCREASED [None]
  - FATIGUE [None]
